FAERS Safety Report 21701603 (Version 1)
Quarter: 2022Q4

REPORT INFORMATION
  Report Type: Spontaneous
  Country: US (occurrence: None)
  Receive Date: 20221208
  Receipt Date: 20221208
  Transmission Date: 20230113
  Serious: Yes (Life-Threatening, Hospitalization, Other)
  Sender: FDA-Public Use
  Company Number: US-Unichem Pharmaceuticals (USA) Inc-UCM202212-001270

PATIENT
  Age: 30 Year
  Sex: Female

DRUGS (6)
  1. LAMOTRIGINE [Suspect]
     Active Substance: LAMOTRIGINE
     Indication: Product used for unknown indication
     Dosage: UNKNOWN
  2. GUANFACINE [Suspect]
     Active Substance: GUANFACINE
     Indication: Product used for unknown indication
     Dosage: UNKNOWN
  3. PROPRANOLOL [Suspect]
     Active Substance: PROPRANOLOL HYDROCHLORIDE
     Indication: Product used for unknown indication
     Dosage: UNKNOWN
  4. SERTRALINE [Suspect]
     Active Substance: SERTRALINE HYDROCHLORIDE
     Indication: Product used for unknown indication
     Dosage: UNKNOWN
  5. ZIPRASIDONE [Suspect]
     Active Substance: ZIPRASIDONE
     Indication: Product used for unknown indication
     Dosage: UNKNOWN
  6. HYDROXYZINE [Suspect]
     Active Substance: HYDROXYZINE HYDROCHLORIDE
     Indication: Product used for unknown indication
     Dosage: UNKNOWN

REACTIONS (14)
  - Vasoplegia syndrome [Recovered/Resolved]
  - Mental impairment [Recovered/Resolved]
  - Areflexia [Recovered/Resolved]
  - Unresponsive to stimuli [Recovered/Resolved]
  - Coma [Recovered/Resolved]
  - Coma scale abnormal [Recovered/Resolved]
  - Bradypnoea [Recovered/Resolved]
  - Bradycardia [Recovered/Resolved]
  - Hypotension [Recovered/Resolved]
  - Suicide attempt [Unknown]
  - Toxicity to various agents [Unknown]
  - Intentional overdose [Unknown]
  - Cough [Recovered/Resolved]
  - Mydriasis [Recovered/Resolved]
